FAERS Safety Report 6184830-4 (Version None)
Quarter: 2009Q2

REPORT INFORMATION
  Report Type: 
  Country: None (occurrence: None)
  Receive Date: 20090508
  Receipt Date: 20090501
  Transmission Date: 20091009
  Serious: Yes (Hospitalization)
  Sender: FDA-Public Use
  Company Number: US-GENENTECH-282426

PATIENT
  Sex: Male

DRUGS (3)
  1. BEVACIZUMAB [Suspect]
     Indication: MULTIPLE MYELOMA
     Dosage: 10 MG/KG, DAYS 1+15
     Route: 042
     Dates: start: 20090205
  2. LENALIDOMIDE [Suspect]
     Indication: MULTIPLE MYELOMA
     Dosage: 25 MG, QDX21
     Route: 048
     Dates: start: 20090205
  3. DEXAMETHASONE 4MG TAB [Suspect]
     Indication: MULTIPLE MYELOMA
     Dosage: 40 MG, UNK
     Route: 048
     Dates: start: 20090205

REACTIONS (9)
  - ATRIAL FLUTTER [None]
  - BLOOD PRESSURE SYSTOLIC DECREASED [None]
  - ELECTROCARDIOGRAM ST SEGMENT ELEVATION [None]
  - FALL [None]
  - HAEMOGLOBIN DECREASED [None]
  - LARGE INTESTINE PERFORATION [None]
  - SEPSIS [None]
  - SYNCOPE [None]
  - WHITE BLOOD CELL COUNT DECREASED [None]
